FAERS Safety Report 17030960 (Version 9)
Quarter: 2021Q4

REPORT INFORMATION
  Report Type: Spontaneous
  Country: GR (occurrence: GR)
  Receive Date: 20191114
  Receipt Date: 20211014
  Transmission Date: 20220303
  Serious: Yes (Life-Threatening, Hospitalization, Other)
  Sender: FDA-Public Use
  Company Number: GR-MYLANLABS-2019M1109192

PATIENT
  Age: 79 Year
  Sex: Male

DRUGS (8)
  1. CLOPIDOGREL [Suspect]
     Active Substance: CLOPIDOGREL BISULFATE
     Indication: Acute coronary syndrome
     Dosage: LOADING DOSE
     Route: 065
  2. CLOPIDOGREL [Suspect]
     Active Substance: CLOPIDOGREL BISULFATE
     Indication: Acute myocardial infarction
     Dosage: 75 MILLIGRAM, QD (MAINTENANCE THERAPY)
     Route: 065
  3. ASPIRIN [Suspect]
     Active Substance: ASPIRIN
     Indication: Acute coronary syndrome
     Dosage: UNK
  4. ASPIRIN [Suspect]
     Active Substance: ASPIRIN
     Indication: Acute myocardial infarction
     Dosage: 100 MILLIGRAM, QD (100 MILLIGRAM DAILY; MAINTENANCE THERAPY)
     Route: 065
  5. FONDAPARINUX [Suspect]
     Active Substance: FONDAPARINUX
     Indication: Acute coronary syndrome
     Dosage: UNK
     Route: 058
  6. FONDAPARINUX [Suspect]
     Active Substance: FONDAPARINUX
     Indication: Acute myocardial infarction
     Dosage: 2.5 MILLIGRAM, QD (MAINTENANCE THERAPY)
     Route: 058
  7. FUROSEMIDE [Concomitant]
     Active Substance: FUROSEMIDE
     Indication: Acute myocardial infarction
     Dosage: UNK
     Route: 042
  8. FUROSEMIDE [Concomitant]
     Active Substance: FUROSEMIDE
     Indication: Acute coronary syndrome
     Dosage: UNK

REACTIONS (10)
  - Cardiac tamponade [Recovering/Resolving]
  - Pericardial effusion [Recovered/Resolved]
  - Thrombosis [Recovering/Resolving]
  - Anuria [Recovering/Resolving]
  - Pericardial haemorrhage [Recovering/Resolving]
  - Condition aggravated [Recovered/Resolved]
  - Blood pressure decreased [Recovered/Resolved]
  - Cardiac arrest [Recovered/Resolved]
  - Pericardial mass [Recovered/Resolved]
  - Pericardial disease [Recovering/Resolving]
